FAERS Safety Report 20474202 (Version 2)
Quarter: 2022Q1

REPORT INFORMATION
  Report Type: Spontaneous
  Country: US (occurrence: US)
  Receive Date: 20220215
  Receipt Date: 20220223
  Transmission Date: 20220423
  Serious: Yes (Hospitalization, Other)
  Sender: FDA-Public Use
  Company Number: US-PFIZER INC-202200223250

PATIENT
  Age: 91 Year
  Sex: Female
  Weight: 68.04 kg

DRUGS (11)
  1. VYNDAMAX [Suspect]
     Active Substance: TAFAMIDIS
     Dosage: 61 MG
  2. IRON [Concomitant]
     Active Substance: IRON
     Indication: Anaemia
     Dosage: UNK
  3. CHOLECALCIFEROL [Concomitant]
     Active Substance: CHOLECALCIFEROL
     Dosage: UNK
  4. KLONOPIN [Concomitant]
     Active Substance: CLONAZEPAM
     Indication: Anxiety
     Dosage: UNK
  5. CARVEDILOL [Concomitant]
     Active Substance: CARVEDILOL
     Dosage: 6.25 UNK, 2X/DAY
  6. WARFARIN [Concomitant]
     Active Substance: WARFARIN
     Dosage: 2.5 UNK
  7. FUROSEMIDE [Concomitant]
     Active Substance: FUROSEMIDE
     Dosage: 2 MG
  8. ASPIRIN [Concomitant]
     Active Substance: ASPIRIN
     Dosage: UNK
  9. AMIODARONE [Concomitant]
     Active Substance: AMIODARONE
     Dosage: 200 MG
  10. SPIRONOLACTONE [Concomitant]
     Active Substance: SPIRONOLACTONE
     Dosage: 25 MG
  11. ATORVASTATIN [Concomitant]
     Active Substance: ATORVASTATIN
     Dosage: 20 MG

REACTIONS (5)
  - Balance disorder [Unknown]
  - Fall [Unknown]
  - Clavicle fracture [Unknown]
  - Pneumonia [Unknown]
  - Pain [Unknown]
